FAERS Safety Report 19727330 (Version 1)
Quarter: 2021Q3

REPORT INFORMATION
  Report Type: Spontaneous
  Country: US (occurrence: US)
  Receive Date: 20210819
  Receipt Date: 20210819
  Transmission Date: 20211014
  Serious: Yes (Hospitalization)
  Sender: FDA-Public Use
  Company Number: None

PATIENT
  Sex: Male

DRUGS (1)
  1. KEYTRUDA [Suspect]
     Active Substance: PEMBROLIZUMAB
     Indication: HORMONE-REFRACTORY PROSTATE CANCER
     Dosage: ?          OTHER FREQUENCY:EVERY 3 WEEKS;OTHER ROUTE:INFUSION 4 INFUSIONS COMPLETED IN TOTAL?
     Dates: start: 20210504, end: 20210712

REACTIONS (2)
  - Disease progression [None]
  - Cholangitis [None]

NARRATIVE: CASE EVENT DATE: 20210813
